FAERS Safety Report 8843672 (Version 2)
Quarter: 2015Q2

REPORT INFORMATION
  Report Type: Report from Study
  Country: US (occurrence: US)
  Receive Date: 20121016
  Receipt Date: 20150615
  Transmission Date: 20150821
  Serious: Yes (Death)
  Sender: FDA-Public Use
  Company Number: US-ROCHE-1132087

PATIENT
  Sex: Male

DRUGS (4)
  1. XELODA [Suspect]
     Active Substance: CAPECITABINE
     Dosage: 2000 MG TWICE DAILY 7 DAYS ON 7 DAYS OFF
     Route: 048
  2. XELODA [Suspect]
     Active Substance: CAPECITABINE
     Indication: COLON CANCER
     Dosage: 2500 MG TWICE DAILY TWICE DAILY 7 DAYS ON 7 DAYS OFF
     Route: 048
  3. OXALIPLATIN. [Concomitant]
     Active Substance: OXALIPLATIN
  4. XELODA [Suspect]
     Active Substance: CAPECITABINE
     Dosage: 1500 MG TWICE DAILY ONE WEEK ON,ONE WEEK OFF
     Route: 048

REACTIONS (3)
  - Death [Fatal]
  - Ear infection [Unknown]
  - Sinusitis [Unknown]
